FAERS Safety Report 4504253-0 (Version None)
Quarter: 2004Q4

REPORT INFORMATION
  Report Type: 
  Country: None (occurrence: None)
  Receive Date: 20041116
  Receipt Date: 20041116
  Transmission Date: 20050328
  Serious: No
  Sender: FDA-Public Use
  Company Number: None

PATIENT
  Age: 70 Year
  Sex: Male
  Weight: 158.759 kg

DRUGS (19)
  1. NPH INSULIN [Suspect]
     Indication: DIABETES MELLITUS
     Dosage: 50 UNITS AM/45 UNITS PM
     Dates: start: 20040128, end: 20040712
  2. HYDROXYZINE [Concomitant]
  3. COUMADIN [Concomitant]
  4. TEMAZEPAM [Concomitant]
  5. METOPROLOL TARTRATE [Concomitant]
  6. ISOSORBIDE MONONITRATE [Concomitant]
  7. NITROGLYERIN [Concomitant]
  8. SIMVASTATIN [Concomitant]
  9. FUROSEMIDE [Concomitant]
  10. LISINOPRIL [Concomitant]
  11. MICONAZOLE NITRATE [Concomitant]
  12. TRIAMCINOLONE ACETONIDE [Concomitant]
  13. AMMONIUM LACTATE 5% LOTION [Concomitant]
  14. ACCU-CHEK COMFORT CV (GLUCOSE) TEST STRIP [Concomitant]
  15. HUMULIN N [Concomitant]
  16. BANDAGE , ELASTIC [Concomitant]
  17. BANDAGE TUBULAR [Concomitant]
  18. UNNA BOOT, WITH CALAMINE [Concomitant]
  19. INSULIN SYRG [Concomitant]

REACTIONS (1)
  - COMA [None]
